FAERS Safety Report 7907396-4 (Version None)
Quarter: 2011Q4

REPORT INFORMATION
  Report Type: 
  Country: None (occurrence: None)
  Receive Date: 20111110
  Receipt Date: 20101022
  Transmission Date: 20120403
  Serious: No
  Sender: FDA-Public Use
  Company Number: US-BAYER-201038196NA

PATIENT
  Sex: Male

DRUGS (6)
  1. ^ALISINOPRIL^ [Concomitant]
     Dosage: 20 MG, UNK
  2. FENOFIBRATE [Concomitant]
     Dosage: 134 MG, UNK
  3. PERCOCET [Concomitant]
  4. NIASPAN [Concomitant]
     Dosage: 2000 MG, UNK
  5. AVELOX [Suspect]
     Indication: BRONCHITIS
     Dosage: 400 MG, QD
     Route: 048
  6. PLAVIX [Concomitant]
     Dosage: 7 MG, UNK

REACTIONS (2)
  - CHEST PAIN [None]
  - URTICARIA [None]
